FAERS Safety Report 7733696-7 (Version None)
Quarter: 2011Q3

REPORT INFORMATION
  Report Type: 
  Country: None (occurrence: None)
  Receive Date: 20110902
  Receipt Date: 20110902
  Transmission Date: 20111222
  Serious: Yes (Disabling)
  Sender: FDA-Public Use
  Company Number: None

PATIENT
  Sex: Female
  Weight: 68.0396 kg

DRUGS (1)
  1. ZICAM [Suspect]
     Indication: HYPERSENSITIVITY
     Dosage: AS NEEDED AM + PM NOSE SPRAY (SHORTLY AFTER IT CAME ON THE MARKET)
     Route: 045

REACTIONS (4)
  - ANOSMIA [None]
  - DRUG INEFFECTIVE [None]
  - DYSGEUSIA [None]
  - RHINORRHOEA [None]
